FAERS Safety Report 18737178 (Version 5)
Quarter: 2021Q1

REPORT INFORMATION
  Report Type: Other
  Country: JP (occurrence: JP)
  Receive Date: 20210113
  Receipt Date: 20210216
  Transmission Date: 20210419
  Serious: Yes (Hospitalization)
  Sender: FDA-Public Use
  Company Number: JP-UROVANT SCIENCES GMBH-202012-URV-000499

PATIENT
  Age: 92 Year
  Sex: Female

DRUGS (3)
  1. NORVASC [Concomitant]
     Active Substance: AMLODIPINE BESYLATE
     Indication: PRODUCT USED FOR UNKNOWN INDICATION
     Dosage: UNK
     Route: 048
  2. BEOVA TABLETS [Suspect]
     Active Substance: VIBEGRON
     Indication: HYPERTONIC BLADDER
     Dosage: 50 MILLIGRAM, QD
     Route: 048
     Dates: start: 20191205, end: 20200715
  3. FRANDOL [Concomitant]
     Active Substance: ISOSORBIDE DINITRATE
     Indication: PRODUCT USED FOR UNKNOWN INDICATION
     Dosage: 40 MILLIGRAM, QD
     Route: 062

REACTIONS (3)
  - Fall [Unknown]
  - Neurogenic bladder [Recovering/Resolving]
  - Femoral neck fracture [Unknown]

NARRATIVE: CASE EVENT DATE: 20200712
